FAERS Safety Report 6902854-3 (Version None)
Quarter: 2010Q3

REPORT INFORMATION
  Report Type: 
  Country: None (occurrence: None)
  Receive Date: 20100803
  Receipt Date: 20080721
  Transmission Date: 20110219
  Serious: Yes (Hospitalization, Other)
  Sender: FDA-Public Use
  Company Number: US-PFIZER INC-2008061417

PATIENT
  Age: 87 Year
  Sex: Female

DRUGS (5)
  1. LYRICA [Suspect]
     Indication: NEURALGIA
     Route: 048
     Dates: start: 20080604, end: 20080610
  2. FLUVASTATIN [Suspect]
     Indication: HYPERCHOLESTEROLAEMIA
     Route: 048
     Dates: start: 20050101, end: 20080610
  3. MORPHINE SULFATE [Suspect]
     Indication: PAIN
     Route: 048
     Dates: start: 20080604, end: 20080610
  4. DULCOLAX [Concomitant]
     Indication: CONSTIPATION
     Route: 048
  5. MULTI-VITAMINS [Concomitant]
     Route: 048

REACTIONS (3)
  - ATAXIA [None]
  - FALL [None]
  - RHABDOMYOLYSIS [None]
